FAERS Safety Report 18293000 (Version 1)
Quarter: 2020Q3

REPORT INFORMATION
  Report Type: Report from Study
  Country: US (occurrence: US)
  Receive Date: 20200921
  Receipt Date: 20200921
  Transmission Date: 20201103
  Serious: Yes (Hospitalization)
  Sender: FDA-Public Use
  Company Number: US-EXELIXIS-CABO-20030463

PATIENT
  Age: 61 Year
  Sex: Male

DRUGS (1)
  1. CABOMETYX [Suspect]
     Active Substance: CABOZANTINIB S-MALATE
     Indication: RENAL CANCER
     Dosage: 40 MG, QD
     Route: 048
     Dates: start: 20200522

REACTIONS (10)
  - Weight decreased [Unknown]
  - Oropharyngeal blistering [Unknown]
  - Swollen tongue [Unknown]
  - Visual impairment [Unknown]
  - Pyrexia [Unknown]
  - Heart rate increased [Unknown]
  - Blood pressure decreased [Unknown]
  - Constipation [Unknown]
  - Stomatitis [Unknown]
  - Feeding disorder [Unknown]

NARRATIVE: CASE EVENT DATE: 202009
